FAERS Safety Report 19382281 (Version 2)
Quarter: 2021Q2

REPORT INFORMATION
  Report Type: Spontaneous
  Country: GB (occurrence: GB)
  Receive Date: 20210607
  Receipt Date: 20210617
  Transmission Date: 20210717
  Serious: Yes (Hospitalization, Other)
  Sender: FDA-Public Use
  Company Number: GB-MYLANLABS-2021M1033003

PATIENT
  Age: 42 Year
  Sex: Male

DRUGS (5)
  1. FLUOXETINE [Concomitant]
     Active Substance: FLUOXETINE HYDROCHLORIDE
     Dosage: TWO TO BE TAKEN DAILY
  2. OMEPRAZOLE. [Concomitant]
     Active Substance: OMEPRAZOLE
     Dosage: UNK UNK, QD
  3. ZOPICLONE [Concomitant]
     Active Substance: ZOPICLONE
     Dosage: ONE TO BE TAKEN AT NIGHT
  4. OLANZAPINE. [Suspect]
     Active Substance: OLANZAPINE
     Indication: PRODUCT USED FOR UNKNOWN INDICATION
     Dosage: 10 MILLIGRAM, QD
  5. THIAMINE. [Concomitant]
     Active Substance: THIAMINE
     Dosage: ONE TO BE TAKEN THREE TIMES A DAY

REACTIONS (9)
  - Coma scale abnormal [Unknown]
  - Jaundice [Unknown]
  - Dyspnoea [Unknown]
  - Diabetic ketoacidosis [Recovered/Resolved]
  - Hyperglycaemia [Unknown]
  - Pancreatitis [Unknown]
  - Hepatitis alcoholic [Unknown]
  - Blood triglycerides increased [Unknown]
  - Hyperlipidaemia [Recovered/Resolved]
